FAERS Safety Report 4577502-0 (Version None)
Quarter: 2005Q1

REPORT INFORMATION
  Report Type: 
  Country: None (occurrence: None)
  Receive Date: 20050208
  Receipt Date: 20050126
  Transmission Date: 20050727
  Serious: Yes (Other)
  Sender: FDA-Public Use
  Company Number: 2004088613

PATIENT
  Age: 67 Year
  Sex: Male
  Weight: 80 kg

DRUGS (3)
  1. MINIPRESS [Suspect]
     Indication: HYPERTENSION
     Dosage: 1 MG (1 MG, 1 IN 1 D), ORAL
     Route: 048
     Dates: start: 20041001, end: 20040101
  2. DYAZIDE [Concomitant]
  3. CLONIDINE [Concomitant]

REACTIONS (3)
  - ANORECTAL DISORDER [None]
  - SURGICAL PROCEDURE REPEATED [None]
  - THROMBOSIS [None]
